FAERS Safety Report 4635231-9 (Version None)
Quarter: 2005Q2

REPORT INFORMATION
  Report Type: 
  Country: None (occurrence: None)
  Receive Date: 20050411
  Receipt Date: 20050404
  Transmission Date: 20051028
  Serious: Yes (Hospitalization)
  Sender: FDA-Public Use
  Company Number: 200511380BCC

PATIENT
  Age: 59 Year
  Sex: Male
  Weight: 113.3993 kg

DRUGS (6)
  1. ORIGINAL ALKA-SELTZER TABLETS [Suspect]
     Indication: DYSPEPSIA
     Dosage: 5200 MG, TOTAL DAILY, ORAL
     Route: 048
     Dates: start: 20050301
  2. METFORMIN [Concomitant]
  3. SIMVASTATIN [Concomitant]
  4. OMEPRAZOLE [Concomitant]
  5. GENERIC FERROUS SULFATE [Concomitant]
  6. FOLIC ACID [Concomitant]

REACTIONS (1)
  - FULL BLOOD COUNT DECREASED [None]
